FAERS Safety Report 6687702-1 (Version None)
Quarter: 2010Q2

REPORT INFORMATION
  Report Type: 
  Country: None (occurrence: None)
  Receive Date: 20100420
  Receipt Date: 20100414
  Transmission Date: 20101027
  Serious: Yes (Other)
  Sender: FDA-Public Use
  Company Number: US-RB-006447-10

PATIENT
  Age: 57 Year
  Sex: Male

DRUGS (1)
  1. MUCINEX D [Suspect]
     Dosage: TOOK TWO PILLS EVERY 12 HOURS FOR THREE OR FOUR DAYS
     Route: 048
     Dates: start: 20100403

REACTIONS (2)
  - INSOMNIA [None]
  - PSYCHOMOTOR HYPERACTIVITY [None]
